FAERS Safety Report 6529996-9 (Version None)
Quarter: 2010Q1

REPORT INFORMATION
  Report Type: 
  Country: None (occurrence: None)
  Receive Date: 20100107
  Receipt Date: 20091228
  Transmission Date: 20100710
  Serious: Yes (Congenital Anomaly)
  Sender: FDA-Public Use
  Company Number: FR-PFIZER INC-2009314611

PATIENT
  Sex: Male
  Weight: 1.54 kg

DRUGS (8)
  1. TAHOR [Suspect]
     Dosage: 80 MG, 1X/DAY
     Route: 015
     Dates: end: 20090916
  2. METFORMIN HCL [Suspect]
     Dosage: 3 G, 1X/DAY
     Route: 015
     Dates: end: 20090916
  3. PLAVIX [Suspect]
     Dosage: 75 MG, PER DAY
     Route: 015
     Dates: end: 20090916
  4. TRIATEC [Suspect]
     Dosage: 5 MG, 1X/DAY
     Route: 015
     Dates: end: 20090916
  5. HUMALOG [Suspect]
     Route: 015
  6. LANTUS [Suspect]
     Route: 015
  7. ALLOPURINOL [Suspect]
     Dosage: 200 MG, PER DAY
     Route: 015
  8. KARDEGIC [Concomitant]
     Dosage: 160 MG, PER DAY
     Route: 015

REACTIONS (4)
  - DRUG EXPOSURE DURING PREGNANCY [None]
  - FOETAL DISORDER [None]
  - HYPOGLYCAEMIA [None]
  - PREMATURE BABY [None]
